FAERS Safety Report 6097930-4 (Version None)
Quarter: 2009Q1

REPORT INFORMATION
  Report Type: 
  Country: None (occurrence: None)
  Receive Date: 20090227
  Receipt Date: 20090223
  Transmission Date: 20090719
  Serious: Yes (Other)
  Sender: FDA-Public Use
  Company Number: US-ELI_LILLY_AND_COMPANY-US200902006373

PATIENT
  Age: 60 Year
  Sex: Male

DRUGS (3)
  1. HUMALOG MIX 75/25 [Suspect]
     Dosage: 45 U, EACH MORNING
  2. HUMALOG MIX 75/25 [Suspect]
     Dosage: 60 U, DAILY (1/D)
  3. HUMALOG MIX 75/25 [Suspect]
     Dosage: 45 U, AS NEEDED

REACTIONS (1)
  - KNEE ARTHROPLASTY [None]
